FAERS Safety Report 19867581 (Version 1)
Quarter: 2021Q3

REPORT INFORMATION
  Report Type: Spontaneous
  Country: BH (occurrence: BH)
  Receive Date: 20210922
  Receipt Date: 20210922
  Transmission Date: 20211014
  Serious: Yes (Other)
  Sender: FDA-Public Use
  Company Number: BH-ALIMERA SCIENCES INC.-BH-A16013-21-000191

PATIENT

DRUGS (1)
  1. ILUVIEN [Suspect]
     Active Substance: FLUOCINOLONE ACETONIDE
     Indication: DIABETIC RETINAL OEDEMA
     Dosage: 0.25 MICROGRAM, QD ? UNKNOWN EYE
     Route: 031
     Dates: start: 201908

REACTIONS (3)
  - Glaucoma [Recovered/Resolved]
  - Medical device removal [Recovered/Resolved]
  - Trabeculectomy [Recovered/Resolved]
